FAERS Safety Report 11500901 (Version 1)
Quarter: 2015Q3

REPORT INFORMATION
  Report Type: Spontaneous
  Country: US (occurrence: None)
  Receive Date: 20150911
  Receipt Date: 20150911
  Transmission Date: 20151125
  Serious: Yes (Life-Threatening, Hospitalization, Other)
  Sender: FDA-Public Use
  Company Number: None

PATIENT
  Age: 39 Year
  Sex: Male
  Weight: 95.26 kg

DRUGS (15)
  1. ABILIFY [Concomitant]
     Active Substance: ARIPIPRAZOLE
  2. PROTONIX [Concomitant]
     Active Substance: PANTOPRAZOLE SODIUM
  3. CARAFATE [Concomitant]
     Active Substance: SUCRALFATE
  4. BACK BRACE [Concomitant]
  5. ZOLOFT [Suspect]
     Active Substance: SERTRALINE HYDROCHLORIDE
     Indication: DEPRESSION
     Dosage: DR SEACOR
     Dates: start: 20150905, end: 20150910
  6. TENS UNIT [Concomitant]
  7. OXYBUTONIN [Concomitant]
  8. ZOLOFT [Suspect]
     Active Substance: SERTRALINE HYDROCHLORIDE
     Indication: PAIN
     Dosage: DR SEACOR
     Dates: start: 20150905, end: 20150910
  9. PERCOCET [Concomitant]
     Active Substance: ACETAMINOPHEN\OXYCODONE HYDROCHLORIDE
  10. ZOLOFT [Concomitant]
     Active Substance: SERTRALINE HYDROCHLORIDE
  11. CIALIS [Concomitant]
     Active Substance: TADALAFIL
  12. TRAMADOL. [Suspect]
     Active Substance: TRAMADOL
     Indication: PAIN
  13. CLARITIN [Concomitant]
     Active Substance: LORATADINE
  14. CANE [Concomitant]
  15. RANITIDINE [Concomitant]
     Active Substance: RANITIDINE\RANITIDINE HYDROCHLORIDE

REACTIONS (4)
  - Violence-related symptom [None]
  - Suicidal ideation [None]
  - Mood swings [None]
  - Suicide attempt [None]

NARRATIVE: CASE EVENT DATE: 20150905
